FAERS Safety Report 15232339 (Version 2)
Quarter: 2018Q3

REPORT INFORMATION
  Report Type: Spontaneous
  Country: DE (occurrence: DE)
  Receive Date: 20180802
  Receipt Date: 20180919
  Transmission Date: 20181010
  Serious: Yes (Hospitalization)
  Sender: FDA-Public Use
  Company Number: DE-JNJFOC-20180740007

PATIENT
  Age: 92 Year
  Sex: Male

DRUGS (7)
  1. TORASEMID [Concomitant]
     Active Substance: TORSEMIDE
     Route: 065
  2. FELODIPIN [Concomitant]
     Active Substance: FELODIPINE
     Route: 065
  3. PANTOPRAZOLE [Concomitant]
     Active Substance: PANTOPRAZOLE
     Route: 065
  4. BISOPROLOL [Concomitant]
     Active Substance: BISOPROLOL
     Route: 065
  5. ALLOPURINOL. [Concomitant]
     Active Substance: ALLOPURINOL
     Route: 065
  6. XARELTO [Suspect]
     Active Substance: RIVAROXABAN
     Indication: ATRIAL FIBRILLATION
     Route: 048
     Dates: start: 201704, end: 20180710
  7. SIMVASTATIN. [Concomitant]
     Active Substance: SIMVASTATIN
     Route: 065

REACTIONS (2)
  - Tumour haemorrhage [Recovered/Resolved]
  - Colon cancer [Recovered/Resolved]

NARRATIVE: CASE EVENT DATE: 20180710
